FAERS Safety Report 16035932 (Version 3)
Quarter: 2019Q2

REPORT INFORMATION
  Report Type: Report from Study
  Country: US (occurrence: US)
  Receive Date: 20190305
  Receipt Date: 20190403
  Transmission Date: 20190711
  Serious: Yes (Hospitalization)
  Sender: FDA-Public Use
  Company Number: US-GILEAD-2019-0394254

PATIENT
  Age: 13 Year
  Sex: Female
  Weight: 10.7 kg

DRUGS (9)
  1. AMBRISENTAN [Suspect]
     Active Substance: AMBRISENTAN
     Indication: PULMONARY ARTERIAL HYPERTENSION
     Dosage: 10 MG, QD
     Route: 048
     Dates: start: 20181119, end: 20190313
  2. REMODULIN [Suspect]
     Active Substance: TREPROSTINIL
     Indication: PRODUCT USED FOR UNKNOWN INDICATION
     Dosage: 54 UG/KG, Q1MINUTE
     Route: 065
     Dates: start: 20181116
  3. ADCIRCA [Concomitant]
     Active Substance: TADALAFIL
  4. SILDENAFIL. [Concomitant]
     Active Substance: SILDENAFIL
  5. AMBRISENTAN [Suspect]
     Active Substance: AMBRISENTAN
     Dosage: 5 MG
     Route: 048
     Dates: start: 20190314, end: 20190321
  6. AMBRISENTAN [Suspect]
     Active Substance: AMBRISENTAN
     Dosage: 5 MG
     Route: 048
     Dates: start: 20181023, end: 20181118
  7. EPOPROSTENOL. [Concomitant]
     Active Substance: EPOPROSTENOL
  8. WARFARIN [Concomitant]
     Active Substance: WARFARIN
  9. ZANTAC [Concomitant]
     Active Substance: RANITIDINE HYDROCHLORIDE

REACTIONS (4)
  - Alanine aminotransferase increased [Not Recovered/Not Resolved]
  - Aspartate aminotransferase increased [Not Recovered/Not Resolved]
  - Hepatic enzyme increased [Unknown]
  - Off label use [Recovered/Resolved]

NARRATIVE: CASE EVENT DATE: 20181023
